FAERS Safety Report 5866684-6 (Version None)
Quarter: 2008Q3

REPORT INFORMATION
  Report Type: 
  Country: None (occurrence: None)
  Receive Date: 20080902
  Receipt Date: 20080822
  Transmission Date: 20090109
  Serious: Yes (Other)
  Sender: FDA-Public Use
  Company Number: US-AMGEN-STX255208

PATIENT
  Sex: Female
  Weight: 54.5 kg

DRUGS (6)
  1. ENBREL [Suspect]
     Indication: AUTOIMMUNE DISORDER
     Route: 058
     Dates: start: 20071016, end: 20071120
  2. ROZEREM [Concomitant]
  3. METHOTREXATE [Concomitant]
     Route: 065
  4. METHOTREXATE [Concomitant]
     Dates: start: 20080129
  5. ESTRADIOL [Concomitant]
     Route: 062
     Dates: start: 20070101
  6. FOLIC ACID [Concomitant]
     Dates: start: 20080129

REACTIONS (16)
  - ARTERITIS [None]
  - BALANCE DISORDER [None]
  - DISTURBANCE IN ATTENTION [None]
  - DYSGEUSIA [None]
  - EYELID PTOSIS [None]
  - GAIT DISTURBANCE [None]
  - HEADACHE [None]
  - LIVER FUNCTION TEST ABNORMAL [None]
  - MALAISE [None]
  - MULTIPLE SCLEROSIS [None]
  - NASOPHARYNGITIS [None]
  - NEUTROPHIL COUNT INCREASED [None]
  - PHOTOPHOBIA [None]
  - STRABISMUS [None]
  - VASCULITIS [None]
  - WHITE BLOOD CELL COUNT INCREASED [None]
